FAERS Safety Report 6063965-0 (Version None)
Quarter: 2009Q1

REPORT INFORMATION
  Report Type: 
  Country: None (occurrence: None)
  Receive Date: 20090204
  Receipt Date: 20090130
  Transmission Date: 20090719
  Serious: Yes (Death, Other)
  Sender: FDA-Public Use
  Company Number: PHHY2009FR03469

PATIENT
  Sex: Female
  Weight: 74 kg

DRUGS (44)
  1. INIPOMP [Suspect]
     Dosage: 20 MG, 1 IN 1 D
     Route: 048
     Dates: start: 20081113, end: 20081204
  2. ZYLORIC [Suspect]
     Dosage: UNK
     Route: 048
     Dates: start: 20081120, end: 20081204
  3. TREOSULFAN [Suspect]
     Dosage: 21 G, UNK
     Route: 042
     Dates: start: 20081115, end: 20081117
  4. FLUDARA [Suspect]
     Dosage: 52 MG, UNK
     Dates: start: 20081115, end: 20081119
  5. FASTURTEC [Suspect]
     Indication: HYPERURICAEMIA
     Dosage: 15 MG, UNK
     Route: 042
     Dates: start: 20081114, end: 20081114
  6. TAZOCILLINE [Suspect]
     Indication: KLEBSIELLA INFECTION
     Dosage: 12 G, UNK
     Dates: start: 20081120, end: 20081128
  7. CIFLOX [Suspect]
     Dosage: UNK
     Route: 042
     Dates: start: 20081124, end: 20081128
  8. METHOTREXATE [Suspect]
     Dosage: 26 MG
     Dates: start: 20081122, end: 20081122
  9. METHOTREXATE [Suspect]
     Dosage: 17 MG
     Dates: start: 20081124, end: 20081124
  10. METHOTREXATE [Suspect]
     Dosage: 17 MG
     Dates: start: 20081127, end: 20081127
  11. METHOTREXATE [Suspect]
     Dosage: 17.4 MG
     Dates: start: 20080102, end: 20081202
  12. TOPALGIC [Suspect]
     Dosage: 50 MG, UNK
     Route: 042
     Dates: start: 20081119, end: 20081204
  13. NOTRAN [Suspect]
  14. CYCLOSPORINE [Suspect]
     Dosage: UNK
     Dates: start: 20081122, end: 20081222
  15. CYCLOSPORINE [Suspect]
     Dosage: UNK
     Dates: start: 20081124, end: 20081124
  16. CYCLOSPORINE [Suspect]
     Dosage: UNK
     Dates: start: 20081127, end: 20081127
  17. CYCLOSPORINE [Suspect]
     Dosage: UNK
     Dates: start: 20081202, end: 20081202
  18. DEXCHLORPHENIRAMINE [Concomitant]
     Dosage: UNK
  19. NOCTRAN 10 [Concomitant]
     Route: 048
  20. BISOPROLOL [Concomitant]
     Dosage: 10 MG, UNK
     Route: 048
     Dates: end: 20081204
  21. TAREG [Concomitant]
     Dosage: 80 MG, UNK
     Route: 048
     Dates: end: 20081204
  22. ANAFRANIL [Concomitant]
     Dosage: UNK
     Route: 048
     Dates: end: 20081204
  23. TERCIAN [Concomitant]
     Dosage: 25 GTT, UNK
     Dates: end: 20081204
  24. OMEPRAZOLE [Concomitant]
     Dosage: 20 MG, UNK
     Route: 048
     Dates: end: 20081204
  25. FORLAX [Concomitant]
     Dosage: 20 MG, PRN
  26. DAFALGAN [Concomitant]
     Dosage: 1500 MG, UNK
     Route: 048
     Dates: end: 20081204
  27. TEMESTA [Concomitant]
     Dosage: 2 DF, UNK
     Route: 048
     Dates: start: 20081113, end: 20081204
  28. BETAGAN [Concomitant]
     Dosage: 1 GTT, UNK
     Dates: start: 20081113, end: 20081204
  29. VITAMIN A [Concomitant]
     Dosage: 2 DERMATOLOGICAL PREPARATION
     Dates: start: 20081113, end: 20081204
  30. FUNGIZONE [Concomitant]
     Dosage: 8 DF, UNK
     Dates: start: 20081115, end: 20081204
  31. VANCOMYCIN [Concomitant]
     Dosage: 4 DF, UNK
     Dates: start: 20081115, end: 20081204
  32. ZOVIRAX [Concomitant]
     Dosage: 500 MG, UNK
     Route: 042
     Dates: start: 20081122, end: 20081204
  33. IMODIUM [Concomitant]
     Dosage: 2 DF, UNK
     Dates: start: 20081123, end: 20081204
  34. ALUMINUM HYDROXIDE AND MAGNESIUM TRISILICATE [Concomitant]
     Indication: DIARRHOEA
     Dosage: UNK
     Route: 048
     Dates: start: 20081123, end: 20081204
  35. CORDARONE [Concomitant]
     Dosage: 4 DF, UNK
     Route: 042
     Dates: start: 20081124, end: 20081128
  36. DOBUTAMINE HCL [Concomitant]
     Dosage: 1 DF, UNK
     Route: 042
     Dates: start: 20081124, end: 20081128
  37. LOXEN [Concomitant]
     Dosage: 50 MG, UNK
     Dates: start: 20081125, end: 20081204
  38. FLAGYL [Concomitant]
     Dosage: 2 DF, UNK
     Dates: start: 20081125, end: 20081204
  39. ONDANSETRON HYDROCHLORIDE [Concomitant]
     Dosage: 8 MG, UNK
     Dates: start: 20081115, end: 20081119
  40. METOCLOPRAMIDE [Concomitant]
     Dosage: 2 DF, UNK
     Dates: start: 20081115, end: 20081119
  41. METHYLPREDNISOLONE [Concomitant]
     Dosage: 60 MEQ, UNK
     Dates: start: 20081119, end: 20081120
  42. FUROSEMIDE [Concomitant]
     Dosage: UNK
     Dates: start: 20081120, end: 20081124
  43. CILASTATIN W/IMIPENEM [Concomitant]
  44. LINEZOLID [Concomitant]

REACTIONS (7)
  - CHOLESTASIS [None]
  - ERYTHEMA [None]
  - NIKOLSKY'S SIGN [None]
  - PAIN [None]
  - SKIN LESION [None]
  - STUPOR [None]
  - TOXIC EPIDERMAL NECROLYSIS [None]
